FAERS Safety Report 10589639 (Version 2)
Quarter: 2015Q3

REPORT INFORMATION
  Report Type: Report from Study
  Country: CN (occurrence: None)
  Receive Date: 20141114
  Receipt Date: 20150805
  Transmission Date: 20151125
  Serious: Yes (Hospitalization)
  Sender: FDA-Public Use
  Company Number: 2014CN010715

PATIENT
  Age: 76 Year
  Sex: Male

DRUGS (16)
  1. THYMOPENTIN (THYMOPENTIN (THYMOPENTIN) [Concomitant]
  2. ACETAMINOPHEN W/CODEINE (CODEINE, PARACETAMOL) [Concomitant]
  3. POTASSIUM MAGNESIUM ASPARTATE (POTASSIIUM MAGNESIUM ASPARTATE) [Concomitant]
  4. IRINOTECAN (IRINOTECAN) [Concomitant]
     Active Substance: IRINOTECAN
  5. CISPLATIN ( CISPLATIN) [Concomitant]
  6. MUCOSOLVAN (MUCOSOLVAN (AMBROXOL HYDROCHLORIDE) [Concomitant]
  7. POTASSIUM CHLORIDE  (POTASSIUM CHLORIDE) [Concomitant]
     Active Substance: POTASSIUM CHLORIDE
  8. NETUPITANT-PALONOSETRON COMBINATION CAPSULE [Suspect]
     Active Substance: NETUPITANT\PALONOSETRON HYDROCHLORIDE
     Indication: PROPHYLAXIS OF NAUSEA AND VOMITING
     Dosage: AS PER PROTOCOL
     Dates: start: 20141027
  9. SODIUM BICARBONATE (SODIUM BICARBONATE) [Concomitant]
  10. LIDOCAINE (LIDOCAINE) [Concomitant]
     Active Substance: LIDOCAINE
  11. DEXAMETHASONE (DEXAMETHASONE) [Suspect]
     Active Substance: DEXAMETHASONE
     Indication: PROPHYLAXIS OF NAUSEA AND VOMITING
     Dosage: 12MG SINGLE, ORAL
     Route: 048
     Dates: start: 20141027, end: 20141027
  12. GLUTATHIONE (GLUTATHIONE) [Concomitant]
  13. PHOSPHOCREATINE (CREATINE PHOSPHATE) [Concomitant]
  14. XIAO AIPING [Concomitant]
  15. B12-VITAMIN (CYANOCOBALAMIN) [Concomitant]
  16. ALANYL GLUTAMINE [Concomitant]
     Active Substance: ALANYL GLUTAMINE

REACTIONS (8)
  - Atrial fibrillation [None]
  - Blood pressure systolic decreased [None]
  - Cardiotoxicity [None]
  - Arrhythmia [None]
  - Pulse abnormal [None]
  - Dizziness [None]
  - Heart injury [None]
  - Blood creatine phosphokinase increased [None]

NARRATIVE: CASE EVENT DATE: 20141102
